FAERS Safety Report 16990148 (Version 1)
Quarter: 2019Q4

REPORT INFORMATION
  Report Type: Spontaneous
  Country: JP (occurrence: JP)
  Receive Date: 20191104
  Receipt Date: 20191104
  Transmission Date: 20200122
  Serious: Yes (Other)
  Sender: FDA-Public Use
  Company Number: JP-PFIZER INC-2019466324

PATIENT
  Age: 98 Year
  Sex: Female

DRUGS (2)
  1. BEPRIDIL [Suspect]
     Active Substance: BEPRIDIL
     Indication: ATRIAL FIBRILLATION
     Dosage: UNK
  2. DISOPYRAMIDE PHOSPHATE. [Suspect]
     Active Substance: DISOPYRAMIDE PHOSPHATE
     Indication: ATRIAL FIBRILLATION
     Dosage: UNK

REACTIONS (1)
  - Bradycardia [Unknown]
